FAERS Safety Report 18748247 (Version 2)
Quarter: 2021Q1

REPORT INFORMATION
  Report Type: Spontaneous
  Country: US (occurrence: US)
  Receive Date: 20210115
  Receipt Date: 20210218
  Transmission Date: 20210419
  Serious: Yes (Hospitalization, Other)
  Sender: FDA-Public Use
  Company Number: US-ASTRAZENECA-2021A002822

PATIENT
  Age: 56 Year
  Weight: 84.4 kg

DRUGS (11)
  1. LEVAQUIN [Concomitant]
     Active Substance: LEVOFLOXACIN
     Indication: PNEUMONIA
     Dates: start: 202012
  2. VITAMIN C [Concomitant]
     Active Substance: ASCORBIC ACID
     Indication: PNEUMONIA
     Dosage: 500 MG, TWO TABLETS DAILY
     Dates: start: 202012
  3. VITAMIN D3 [Concomitant]
     Active Substance: CHOLECALCIFEROL
     Indication: PNEUMONIA
     Dates: start: 202012
  4. FOLIC ACID. [Concomitant]
     Active Substance: FOLIC ACID
     Indication: PNEUMONIA
     Dates: start: 202012
  5. SULFAMETHOXAZOLE?TRIMETHOPRIM [Concomitant]
     Active Substance: SULFAMETHOXAZOLE\TRIMETHOPRIM
     Indication: LIPOMA EXCISION
     Dates: start: 20201130
  6. SYMBICORT [Suspect]
     Active Substance: BUDESONIDE\FORMOTEROL FUMARATE DIHYDRATE
     Indication: CHRONIC OBSTRUCTIVE PULMONARY DISEASE
     Dosage: 160/4.5 MCG, TWO TIMES A DAY
     Route: 055
     Dates: start: 2011
  7. ELIQUIS [Concomitant]
     Active Substance: APIXABAN
     Indication: PNEUMONIA
     Dates: start: 202012
  8. DIGOXIN. [Concomitant]
     Active Substance: DIGOXIN
     Indication: PNEUMONIA
     Dates: start: 202012
  9. VENTOLIN HFA [Concomitant]
     Active Substance: ALBUTEROL SULFATE
     Indication: PNEUMONIA
     Dosage: 90 MCG, TWO PUFFS
     Dates: start: 202012
  10. PREDNISONE. [Concomitant]
     Active Substance: PREDNISONE
     Indication: PNEUMONIA
     Dates: start: 202012
  11. ZINC SULFATE. [Concomitant]
     Active Substance: ZINC SULFATE
     Indication: PNEUMONIA
     Dates: start: 202012

REACTIONS (10)
  - Hypoxia [Unknown]
  - Dyspnoea [Recovering/Resolving]
  - Oxygen saturation decreased [Unknown]
  - Lipoma [Unknown]
  - Intentional product misuse [Recovered/Resolved]
  - Device delivery system issue [Unknown]
  - Intentional device misuse [Not Recovered/Not Resolved]
  - Dehydration [Recovering/Resolving]
  - Blood sodium decreased [Unknown]
  - Pneumonia [Unknown]

NARRATIVE: CASE EVENT DATE: 2011
